FAERS Safety Report 21417102 (Version 1)
Quarter: 2022Q4

REPORT INFORMATION
  Report Type: Report from Study
  Country: JP (occurrence: JP)
  Receive Date: 20221006
  Receipt Date: 20221006
  Transmission Date: 20230112
  Serious: Yes (Other)
  Sender: FDA-Public Use
  Company Number: JP-RECORDATI RARE DISEASE INC.-2022004726

PATIENT
  Age: 0 Year
  Sex: Male
  Weight: .96 kg

DRUGS (3)
  1. NEOPROFEN [Suspect]
     Active Substance: IBUPROFEN LYSINE
     Indication: Patent ductus arteriosus
     Dosage: 9.5 MILLIGRAM
     Route: 042
     Dates: start: 20210918, end: 20210918
  2. NEOPROFEN [Suspect]
     Active Substance: IBUPROFEN LYSINE
     Dosage: 9.0 MILLIGRAM
     Route: 042
     Dates: start: 20210924, end: 20210924
  3. CAFFEINE [Concomitant]
     Active Substance: CAFFEINE
     Indication: Infantile apnoea
     Dosage: UNK
     Route: 042
     Dates: start: 20210922, end: 20210928

REACTIONS (2)
  - Meconium ileus [Recovered/Resolved]
  - Urine output decreased [Recovered/Resolved]

NARRATIVE: CASE EVENT DATE: 20210918
